FAERS Safety Report 6930641-9 (Version None)
Quarter: 2010Q3

REPORT INFORMATION
  Report Type: 
  Country: None (occurrence: None)
  Receive Date: 20100813
  Receipt Date: 20100802
  Transmission Date: 20110219
  Serious: Yes (Other)
  Sender: FDA-Public Use
  Company Number: 013478

PATIENT
  Sex: Male
  Weight: 77 kg

DRUGS (5)
  1. VIMPAT [Suspect]
     Dosage: 150 MG BID
  2. PHENYTOIN [Concomitant]
  3. CARBAMAZEPINE [Concomitant]
  4. CLOBAZAM [Concomitant]
  5. LORAZEPAM [Concomitant]

REACTIONS (6)
  - BULIMIA NERVOSA [None]
  - DRUG INEFFECTIVE [None]
  - FATIGUE [None]
  - INITIAL INSOMNIA [None]
  - INSOMNIA [None]
  - LOGORRHOEA [None]
